FAERS Safety Report 11679622 (Version 2)
Quarter: 2015Q4

REPORT INFORMATION
  Report Type: Spontaneous
  Country: US (occurrence: US)
  Receive Date: 20151027
  Receipt Date: 20151104
  Transmission Date: 20160304
  Serious: No
  Sender: FDA-Public Use
  Company Number: US-ELI_LILLY_AND_COMPANY-US201009000677

PATIENT
  Age: 58 Year
  Sex: Female

DRUGS (13)
  1. ALVESCO [Concomitant]
     Active Substance: CICLESONIDE
  2. FORTEO [Suspect]
     Active Substance: TERIPARATIDE
     Dosage: 20 UG, QOD
     Route: 065
     Dates: start: 20101112
  3. HYDROCHLOROTHIAZIDE. [Concomitant]
     Active Substance: HYDROCHLOROTHIAZIDE
  4. FORTEO [Suspect]
     Active Substance: TERIPARATIDE
     Indication: OSTEOPOROSIS
     Dosage: 20 UG, DAILY (1/D)
     Route: 065
     Dates: start: 20100629, end: 20101111
  5. MOBIC [Concomitant]
     Active Substance: MELOXICAM
  6. ZAPONEX [Concomitant]
     Active Substance: CLOZAPINE
  7. ZETIA [Concomitant]
     Active Substance: EZETIMIBE
  8. EYE DROPS [Concomitant]
     Active Substance: TETRAHYDROZOLINE HYDROCHLORIDE
  9. ESTRONE W/PROGESTERONE [Concomitant]
  10. FLECTOR /00372302/ [Concomitant]
     Active Substance: DICLOFENAC SODIUM
  11. LIDODERM [Concomitant]
     Active Substance: LIDOCAINE
  12. ALLEGRA [Concomitant]
     Active Substance: FEXOFENADINE HYDROCHLORIDE
  13. VOLTAREN [Concomitant]
     Active Substance: DICLOFENAC SODIUM

REACTIONS (8)
  - Blood alkaline phosphatase increased [Recovered/Resolved]
  - Groin pain [Recovering/Resolving]
  - Nasopharyngitis [Unknown]
  - Drug prescribing error [Not Recovered/Not Resolved]
  - Femoral hernia [Unknown]
  - Arthralgia [Recovered/Resolved]
  - Blood calcium increased [Recovered/Resolved]
  - Pain in extremity [Recovered/Resolved]

NARRATIVE: CASE EVENT DATE: 201007
